FAERS Safety Report 16707469 (Version 2)
Quarter: 2019Q3

REPORT INFORMATION
  Report Type: Spontaneous
  Country: VN (occurrence: VN)
  Receive Date: 20190815
  Receipt Date: 20190830
  Transmission Date: 20191004
  Serious: Yes (Life-Threatening, Hospitalization, Other)
  Sender: FDA-Public Use
  Company Number: VN-B.I. PHARMACEUTICALS,INC./RIDGEFIELD-2019-BI-033013

PATIENT
  Age: 87 Year
  Sex: Male

DRUGS (1)
  1. PRADAXA [Suspect]
     Active Substance: DABIGATRAN ETEXILATE MESYLATE
     Indication: PRODUCT USED FOR UNKNOWN INDICATION
     Route: 065

REACTIONS (11)
  - Activated partial thromboplastin time prolonged [Recovered/Resolved]
  - Activated partial thromboplastin time prolonged [Unknown]
  - Haemorrhage [Unknown]
  - Activated partial thromboplastin time abnormal [Unknown]
  - Anuria [Unknown]
  - Haemoptysis [Unknown]
  - Pollakiuria [Unknown]
  - Renal impairment [Unknown]
  - Dyspnoea [Unknown]
  - Pneumonia [Not Recovered/Not Resolved]
  - Procoagulant therapy [Unknown]

NARRATIVE: CASE EVENT DATE: 20190808
